FAERS Safety Report 5482333-3 (Version None)
Quarter: 2007Q4

REPORT INFORMATION
  Report Type: 
  Country: None (occurrence: None)
  Receive Date: 20071011
  Receipt Date: 20071005
  Transmission Date: 20080405
  Serious: Yes (Other)
  Sender: FDA-Public Use
  Company Number: AU-AVENTIS-200714074EU

PATIENT
  Age: 71 Year
  Sex: Female

DRUGS (13)
  1. LASIX [Suspect]
     Route: 048
     Dates: start: 20061001
  2. BICOR                              /00188902/ [Concomitant]
     Route: 048
     Dates: start: 20061115
  3. KEFLEX [Concomitant]
     Route: 048
     Dates: start: 20070824
  4. COUMADIN [Concomitant]
     Route: 048
     Dates: start: 20061105
  5. DIAFORMIN [Concomitant]
     Route: 048
     Dates: start: 20061016
  6. RENITEC                            /00574901/ [Concomitant]
     Route: 048
     Dates: start: 20061009
  7. ZOTON [Concomitant]
     Route: 048
     Dates: start: 20061009
  8. FERROGRAD C                        /00201001/ [Concomitant]
     Route: 048
     Dates: start: 20070813
  9. BETALOC [Concomitant]
     Route: 048
     Dates: start: 20061020
  10. LIPEX                              /00848101/ [Concomitant]
     Route: 048
     Dates: start: 20061020
  11. COLGOUT [Concomitant]
     Route: 048
     Dates: start: 20061009
  12. ZYLOPRIM [Concomitant]
     Route: 048
     Dates: start: 20070416
  13. PROGOUT [Concomitant]
     Route: 048
     Dates: start: 20061009

REACTIONS (4)
  - ANGINA PECTORIS [None]
  - CHEST PAIN [None]
  - HEART RATE INCREASED [None]
  - INSOMNIA [None]
